FAERS Safety Report 10633283 (Version 1)
Quarter: 2014Q4

REPORT INFORMATION
  Report Type: Spontaneous
  Country: IT (occurrence: None)
  Receive Date: 20141203
  Receipt Date: 20141203
  Transmission Date: 20150529
  Serious: Yes (Other)
  Sender: FDA-Public Use
  Company Number: FK201405661

PATIENT
  Age: 79 Year

DRUGS (3)
  1. FLUOROURACIL. [Suspect]
     Active Substance: FLUOROURACIL
     Indication: COLON CANCER
     Dosage: CYCLICAL, NOT OTHERWISE SPECIFIED
     Route: 042
     Dates: start: 20140925, end: 20141028
  2. VECTIBIX [Suspect]
     Active Substance: PANITUMUMAB
     Indication: COLON CANCER
     Dosage: CYCLICAL, NOT OTHERWISE SPECIFIED
     Route: 042
     Dates: start: 20140925, end: 20141028
  3. IRINOTECAN [Suspect]
     Active Substance: IRINOTECAN
     Indication: COLON CANCER
     Dosage: CYCLICAL, NOT OTHERWISE SPECIFIED
     Route: 042
     Dates: start: 20140925, end: 20141028

REACTIONS (1)
  - Conjunctivitis [None]

NARRATIVE: CASE EVENT DATE: 20141007
